FAERS Safety Report 5941217-4 (Version None)
Quarter: 2008Q4

REPORT INFORMATION
  Report Type: 
  Country: None (occurrence: None)
  Receive Date: 20081104
  Receipt Date: 20081027
  Transmission Date: 20090506
  Serious: Yes (Disabling)
  Sender: FDA-Public Use
  Company Number: FR-PFIZER INC-2008088304

PATIENT
  Sex: Female
  Weight: 67 kg

DRUGS (1)
  1. CHAMPIX [Suspect]
     Route: 048
     Dates: start: 20080401, end: 20080725

REACTIONS (2)
  - SLEEP DISORDER [None]
  - VESTIBULAR DISORDER [None]
